FAERS Safety Report 6361751-5 (Version None)
Quarter: 2009Q3

REPORT INFORMATION
  Report Type: 
  Country: None (occurrence: None)
  Receive Date: 20090821
  Receipt Date: 20090716
  Transmission Date: 20100115
  Serious: No
  Sender: FDA-Public Use
  Company Number: 8049151

PATIENT
  Age: 17 Year
  Sex: Male
  Weight: 77.5 kg

DRUGS (3)
  1. CIMZIA [Suspect]
     Indication: CROHN'S DISEASE
     Dosage: 400 MG SC
     Route: 058
     Dates: start: 20090523
  2. ASACOL [Concomitant]
  3. PREDNISONE [Concomitant]

REACTIONS (2)
  - ACNE [None]
  - RECTAL HAEMORRHAGE [None]
